FAERS Safety Report 18705721 (Version 1)
Quarter: 2021Q1

REPORT INFORMATION
  Report Type: Spontaneous
  Country: US (occurrence: US)
  Receive Date: 20210106
  Receipt Date: 20210106
  Transmission Date: 20210419
  Serious: Yes (Hospitalization, Other)
  Sender: FDA-Public Use
  Company Number: US-ACCORD-212881

PATIENT
  Age: 49 Year
  Sex: Male

DRUGS (6)
  1. IMMUNOGLOBULIN [Concomitant]
     Dosage: 400 MG/KG PER DOSE EVERY 4 WEEKS,?INCREASED TO 600 MG/KG PER DOSE EVERY 4 WEEKS
     Route: 042
  2. CLARITHROMYCIN. [Concomitant]
     Active Substance: CLARITHROMYCIN
     Indication: SINUSITIS
  3. METHOTREXATE. [Suspect]
     Active Substance: METHOTREXATE
     Indication: RHEUMATOID ARTHRITIS
     Dosage: METHOTREXATE WEEKLY
     Dates: start: 2008
  4. AZITHROMYCIN ANHYDROUS. [Concomitant]
     Active Substance: AZITHROMYCIN ANHYDROUS
     Indication: PROPHYLAXIS
  5. RITUXIMAB. [Suspect]
     Active Substance: RITUXIMAB
     Indication: RHEUMATOID ARTHRITIS
     Dosage: EVERY SIX MONTHS
     Dates: start: 2008
  6. PARACETAMOL [Concomitant]
     Active Substance: ACETAMINOPHEN
     Indication: PYREXIA

REACTIONS (2)
  - COVID-19 pneumonia [Recovered/Resolved]
  - Humoral immune defect [Unknown]

NARRATIVE: CASE EVENT DATE: 2017
